FAERS Safety Report 12745112 (Version 2)
Quarter: 2016Q3

REPORT INFORMATION
  Report Type: Report from Study
  Country: MX (occurrence: MX)
  Receive Date: 20160915
  Receipt Date: 20160915
  Transmission Date: 20161109
  Serious: No
  Sender: FDA-Public Use
  Company Number: MX-UCBSA-2016034435

PATIENT
  Sex: Male
  Weight: 70 kg

DRUGS (2)
  1. LEVETIRACETAM. [Suspect]
     Active Substance: LEVETIRACETAM
     Indication: OFF LABEL USE
  2. LEVETIRACETAM. [Suspect]
     Active Substance: LEVETIRACETAM
     Indication: LIMB OPERATION
     Dosage: 1 G, ONCE DAILY (QD)
     Route: 042
     Dates: start: 20160817

REACTIONS (1)
  - No adverse event [Unknown]
